FAERS Safety Report 7884720-2 (Version None)
Quarter: 2011Q4

REPORT INFORMATION
  Report Type: 
  Country: None (occurrence: None)
  Receive Date: 20111102
  Receipt Date: 20111026
  Transmission Date: 20120403
  Serious: Yes (Hospitalization)
  Sender: FDA-Public Use
  Company Number: US-AMGEN-USASP2011055483

PATIENT
  Sex: Female

DRUGS (2)
  1. FEMARA [Concomitant]
  2. XGEVA [Suspect]
     Indication: METASTASES TO BONE
     Dosage: 120 MG, Q4WK
     Dates: start: 20110901, end: 20111014

REACTIONS (4)
  - BONE PAIN [None]
  - COLITIS ISCHAEMIC [None]
  - SWELLING FACE [None]
  - PAIN IN JAW [None]
